FAERS Safety Report 14116989 (Version 1)
Quarter: 2017Q4

REPORT INFORMATION
  Report Type: Spontaneous
  Country: NL (occurrence: NL)
  Receive Date: 20171023
  Receipt Date: 20171023
  Transmission Date: 20180321
  Serious: Yes (Other)
  Sender: FDA-Public Use
  Company Number: NL-PFIZER INC-2017420123

PATIENT
  Age: 71 Year
  Sex: Male

DRUGS (5)
  1. PERINDOPRIL [Concomitant]
     Active Substance: PERINDOPRIL
     Dosage: 4 MG, 1X/DAY
     Route: 048
  2. SOMAVERT [Suspect]
     Active Substance: PEGVISOMANT
     Dosage: 20 MG, 2X/WEEK (20 MG ON SUNDAYS AND 20 MG ON WEDNESDAYS)
     Route: 058
     Dates: start: 20081220
  3. SOMAVERT [Suspect]
     Active Substance: PEGVISOMANT
     Indication: ACROMEGALY
     Dosage: UNK
     Route: 058
     Dates: start: 20080813
  4. OCTREOTIDE. [Concomitant]
     Active Substance: OCTREOTIDE
     Dosage: 1X/8WEEKS
     Route: 058
  5. AMOXICILLINE/CLAVULAANZUUR [Concomitant]
     Active Substance: AMOXICILLIN\CLAVULANATE POTASSIUM
     Dosage: UNK, 3X/DAY
     Route: 048

REACTIONS (5)
  - Pain in extremity [Recovering/Resolving]
  - Wound infection [Recovering/Resolving]
  - Peripheral swelling [Recovering/Resolving]
  - Road traffic accident [Recovering/Resolving]
  - Product use issue [Unknown]

NARRATIVE: CASE EVENT DATE: 20080813
